FAERS Safety Report 11080468 (Version 2)
Quarter: 2015Q3

REPORT INFORMATION
  Report Type: Spontaneous
  Country: US (occurrence: US)
  Receive Date: 20150430
  Receipt Date: 20150825
  Transmission Date: 20151125
  Serious: Yes (Hospitalization, Other)
  Sender: FDA-Public Use
  Company Number: US-JNJFOC-20150421209

PATIENT
  Age: 11 Month
  Sex: Female
  Weight: 8.47 kg

DRUGS (3)
  1. TYLENOL [Suspect]
     Active Substance: ACETAMINOPHEN
     Indication: PYREXIA
     Dosage: APPROXIMATELY 4.8 ML IN 24 HOURS.
     Route: 048
     Dates: start: 20091215, end: 20091221
  2. AMOXIL [Concomitant]
     Active Substance: AMOXICILLIN
     Indication: OTITIS MEDIA
     Dosage: 6 ML TWO TIMES DAILY.
     Route: 048
     Dates: start: 20091219, end: 20091221
  3. TYLENOL [Suspect]
     Active Substance: ACETAMINOPHEN
     Indication: VIRAL INFECTION
     Dosage: APPROXIMATELY 4.8 ML IN 24 HOURS.
     Route: 048
     Dates: start: 20091215, end: 20091221

REACTIONS (3)
  - Acute hepatic failure [Recovering/Resolving]
  - Encephalopathy [Recovering/Resolving]
  - Hepatotoxicity [Recovering/Resolving]

NARRATIVE: CASE EVENT DATE: 200912
